FAERS Safety Report 17715349 (Version 2)
Quarter: 2020Q2

REPORT INFORMATION
  Report Type: Report from Study
  Country: BR (occurrence: BR)
  Receive Date: 20200427
  Receipt Date: 20200511
  Transmission Date: 20200714
  Serious: Yes (Other)
  Sender: FDA-Public Use
  Company Number: NVSC2020BR112801

PATIENT
  Age: 53 Year
  Sex: Male

DRUGS (11)
  1. OMEPRAZOLE. [Suspect]
     Active Substance: OMEPRAZOLE
     Indication: PRODUCT USED FOR UNKNOWN INDICATION
     Dosage: UNK
     Route: 065
  2. PREDNISONE. [Concomitant]
     Active Substance: PREDNISONE
     Indication: JOINT FLUID DRAINAGE
     Dosage: 5 MG, 5QD
     Route: 065
     Dates: start: 2005
  3. COSENTYX [Suspect]
     Active Substance: SECUKINUMAB
     Indication: PSORIATIC ARTHROPATHY
     Dosage: 2 AMPOULES, QMO
     Route: 058
     Dates: start: 201901
  4. COSENTYX [Suspect]
     Active Substance: SECUKINUMAB
     Dosage: UNK UNK, QMO
     Route: 065
     Dates: start: 20190119
  5. METHOTREXATE. [Concomitant]
     Active Substance: METHOTREXATE
     Dosage: UNK
     Route: 065
  6. ADALIMUMAB [Concomitant]
     Active Substance: ADALIMUMAB
     Indication: PSORIATIC ARTHROPATHY
     Dosage: 50 MG, UNKNOWN (ONE AMPOULE)
     Route: 065
     Dates: start: 2012, end: 2018
  7. METHOTREXATE. [Concomitant]
     Active Substance: METHOTREXATE
     Dosage: 3 TABLETS BY THE MORNING AND 2 BY THE NIGHT (2.5 MG)
     Route: 048
     Dates: end: 201910
  8. COSENTYX [Suspect]
     Active Substance: SECUKINUMAB
     Dosage: UNK UNK, QMO
     Route: 065
     Dates: start: 20200317
  9. METHOTREXATE. [Concomitant]
     Active Substance: METHOTREXATE
     Indication: PRODUCT USED FOR UNKNOWN INDICATION
     Dosage: 5 TABLETS ON MONDAY AND 5 TABLETS ON TUESDAY
     Route: 065
  10. TIMOLOL. [Suspect]
     Active Substance: TIMOLOL
     Indication: PRODUCT USED FOR UNKNOWN INDICATION
     Dosage: UNK
     Route: 065
  11. PLEXUS [Concomitant]
     Indication: PRODUCT USED FOR UNKNOWN INDICATION
     Dosage: UNK
     Route: 065

REACTIONS (30)
  - Glaucoma [Not Recovered/Not Resolved]
  - Headache [Unknown]
  - Injection site haemorrhage [Not Recovered/Not Resolved]
  - Skin abrasion [Not Recovered/Not Resolved]
  - Skin wound [Unknown]
  - Fungal infection [Not Recovered/Not Resolved]
  - Vitreous floaters [Unknown]
  - Uveitis [Not Recovered/Not Resolved]
  - Extravasation [Recovered/Resolved]
  - Vomiting [Recovered/Resolved]
  - Psoriasis [Unknown]
  - Vision blurred [Not Recovered/Not Resolved]
  - Peripheral swelling [Unknown]
  - Therapeutic product effect incomplete [Not Recovered/Not Resolved]
  - Abdominal discomfort [Recovered/Resolved]
  - Limb discomfort [Unknown]
  - Joint swelling [Not Recovered/Not Resolved]
  - Skin exfoliation [Unknown]
  - Malaise [Recovered/Resolved]
  - Abdominal pain upper [Recovered/Resolved]
  - Joint effusion [Recovered/Resolved]
  - Keratitis [Unknown]
  - Swelling [Unknown]
  - Anorectal discomfort [Unknown]
  - Dyschezia [Unknown]
  - Nausea [Recovered/Resolved]
  - Asthenia [Recovered/Resolved]
  - Eye pain [Unknown]
  - Arthritis [Not Recovered/Not Resolved]
  - Aspiration joint [Unknown]

NARRATIVE: CASE EVENT DATE: 201907
